FAERS Safety Report 10163697 (Version 3)
Quarter: 2014Q3

REPORT INFORMATION
  Report Type: Report from Study
  Country: DE (occurrence: NL)
  Receive Date: 20140509
  Receipt Date: 20140716
  Transmission Date: 20150326
  Serious: Yes (Death, Hospitalization, Other)
  Sender: FDA-Public Use
  Company Number: DE-ACTELION-A-US2010-98293

PATIENT
  Age: 58 Year
  Sex: Female

DRUGS (3)
  1. VENTAVIS [Suspect]
     Active Substance: ILOPROST
     Dosage: 3 AMPOULES DAILY
     Route: 055
     Dates: start: 201011
  2. VENTAVIS [Suspect]
     Active Substance: ILOPROST
     Dosage: 4 AMPOULES DAILY
     Route: 055
     Dates: start: 201011
  3. VENTAVIS [Suspect]
     Active Substance: ILOPROST
     Indication: PULMONARY ARTERIAL HYPERTENSION
     Dosage: 3 AMPOULES DAILY
     Route: 055
     Dates: start: 20100915, end: 20110531

REACTIONS (10)
  - Glossodynia [Unknown]
  - Visual acuity reduced [Unknown]
  - Gastrointestinal disorder [Unknown]
  - Nasopharyngitis [Unknown]
  - Malaise [Unknown]
  - Pulmonary arterial hypertension [Fatal]
  - Diverticulitis [Unknown]
  - Eye disorder [Unknown]
  - Cough [Unknown]
  - Dizziness [Unknown]

NARRATIVE: CASE EVENT DATE: 20100923
